FAERS Safety Report 21693838 (Version 1)
Quarter: 2022Q4

REPORT INFORMATION
  Report Type: Spontaneous
  Country: IR (occurrence: IR)
  Receive Date: 20221207
  Receipt Date: 20221207
  Transmission Date: 20230113
  Serious: Yes (Hospitalization, Other)
  Sender: FDA-Public Use
  Company Number: IR-Accord-289912

PATIENT
  Age: 73 Year
  Sex: Female

DRUGS (1)
  1. EPTIFIBATIDE [Suspect]
     Active Substance: EPTIFIBATIDE
     Indication: Product used for unknown indication
     Dosage: 180 MCG/KG IV STAT, THEN CONTINUOUS INFUSION 1 MCG/ KG/MIN WITH ANOTHER 180 MCG/KG IV BOLUS 10 MINU

REACTIONS (4)
  - Pulmonary alveolar haemorrhage [Recovered/Resolved]
  - Haemoptysis [Recovered/Resolved]
  - Haemoglobin decreased [Recovered/Resolved]
  - Metabolic acidosis [Recovered/Resolved]
